FAERS Safety Report 5890300-0 (Version None)
Quarter: 2008Q3

REPORT INFORMATION
  Report Type: 
  Country: None (occurrence: None)
  Receive Date: 20080918
  Receipt Date: 20080909
  Transmission Date: 20090109
  Serious: Yes (Death, Hospitalization)
  Sender: FDA-Public Use
  Company Number: 2008AL006286

PATIENT
  Age: 85 Year
  Sex: Female
  Weight: 68.9467 kg

DRUGS (9)
  1. DIGOXIN [Suspect]
     Indication: ARRHYTHMIA
     Dosage: 0.125MG DAILY PO
     Route: 048
  2. LANOXIN [Concomitant]
  3. LASIX [Concomitant]
  4. TOPROL-XL [Concomitant]
  5. VYTORIN [Concomitant]
  6. COUMADIN [Concomitant]
  7. MIRAPEX [Concomitant]
  8. LEVOTHYROXINE SODIUM [Concomitant]
  9. SPIRONOLACTONE [Concomitant]

REACTIONS (7)
  - CARDIAC DISORDER [None]
  - FALL [None]
  - HEAD INJURY [None]
  - HYPOTENSION [None]
  - IMPLANTABLE DEFIBRILLATOR INSERTION [None]
  - LOSS OF CONSCIOUSNESS [None]
  - SPINAL FRACTURE [None]
